FAERS Safety Report 8378914-X (Version None)
Quarter: 2012Q2

REPORT INFORMATION
  Report Type: 
  Country: None (occurrence: None)
  Receive Date: 20120523
  Receipt Date: 20120518
  Transmission Date: 20120825
  Serious: No
  Sender: FDA-Public Use
  Company Number: US-PFIZER INC-2012077130

PATIENT
  Sex: Female

DRUGS (9)
  1. NEXIUM [Concomitant]
     Indication: GASTROOESOPHAGEAL REFLUX DISEASE
     Dosage: 40 MG, 1X/DAY
     Route: 048
  2. CALCIUM [Concomitant]
     Indication: OSTEOPOROSIS PROPHYLAXIS
     Dosage: 600 MG, 2X/DAY
     Route: 048
  3. CLONAZEPAM [Concomitant]
     Indication: RESTLESSNESS
     Dosage: 1 MG, AS NEEDED
     Route: 048
  4. LISINOPRIL [Concomitant]
     Dosage: 10 MG, 1X/DAY
     Route: 048
  5. XALKORI [Suspect]
     Indication: NON-SMALL CELL LUNG CANCER
     Dosage: 250 MG, 2X/DAY
     Route: 048
     Dates: start: 20120101
  6. FISH OIL [Concomitant]
     Indication: SUPPLEMENTATION THERAPY
     Dosage: 1000 MG, 1X/DAY (1 CAPSULE)
     Route: 048
  7. VITAMIN D [Concomitant]
     Dosage: 2000 IU, 1X/DAY
     Route: 048
  8. VITAMIN B-12 [Concomitant]
     Dosage: 1000 UG, 1X/DAY
     Route: 048
  9. VYTORIN [Concomitant]
     Indication: BLOOD CHOLESTEROL
     Dosage: 10/40 MG, 1X/DAY
     Route: 048

REACTIONS (2)
  - SEASONAL ALLERGY [None]
  - HYPERSENSITIVITY [None]
